FAERS Safety Report 9024265 (Version 1)
Quarter: 2013Q1

REPORT INFORMATION
  Report Type: Spontaneous
  Country: EC (occurrence: EC)
  Receive Date: 20130121
  Receipt Date: 20130121
  Transmission Date: 20140127
  Serious: Yes (Death)
  Sender: FDA-Public Use
  Company Number: PHHY2013EC005060

PATIENT
  Sex: Male

DRUGS (1)
  1. EXFORGE HCT [Suspect]
     Dosage: 1 DF (160 MG VALS, 10 MG AMLO AND 12.5 MG HYDRO), UNK
     Route: 048

REACTIONS (2)
  - Diabetic complication [Fatal]
  - Multi-organ failure [Fatal]
